FAERS Safety Report 4846031-9 (Version None)
Quarter: 2005Q4

REPORT INFORMATION
  Report Type: 
  Country: None (occurrence: None)
  Receive Date: 20051206
  Receipt Date: 20051123
  Transmission Date: 20060501
  Serious: Yes (Hospitalization)
  Sender: FDA-Public Use
  Company Number: NZ-JNJFOC-20051200638

PATIENT
  Sex: Male

DRUGS (8)
  1. TRAMADOL HYDROCHLORIDE [Suspect]
     Dosage: 50-100MG
     Route: 065
  2. NSAID [Concomitant]
     Route: 065
  3. VOLTAREN [Concomitant]
     Route: 065
  4. PARADEX [Concomitant]
     Route: 065
  5. PARADEX [Concomitant]
     Route: 065
  6. AMOXICILLIN TRIHYDRATE [Concomitant]
     Route: 065
  7. AUGMENTIN [Concomitant]
     Route: 065
  8. AUGMENTIN [Concomitant]
     Route: 065

REACTIONS (4)
  - ANAPHYLACTIC REACTION [None]
  - ANGIONEUROTIC OEDEMA [None]
  - DIZZINESS [None]
  - NAUSEA [None]
